FAERS Safety Report 6861951-1 (Version None)
Quarter: 2010Q3

REPORT INFORMATION
  Report Type: 
  Country: None (occurrence: None)
  Receive Date: 20100721
  Receipt Date: 20100712
  Transmission Date: 20110219
  Serious: Yes (Hospitalization)
  Sender: FDA-Public Use
  Company Number: GB-CEPHALON-2009029275

PATIENT
  Sex: Male

DRUGS (7)
  1. TRISENOX [Suspect]
     Indication: ACUTE PROMYELOCYTIC LEUKAEMIA
     Route: 041
     Dates: start: 20090811
  2. ATRA [Suspect]
     Indication: ACUTE PROMYELOCYTIC LEUKAEMIA
     Route: 048
     Dates: start: 20090807
  3. ALLOPURINOL [Concomitant]
     Dates: start: 20090807
  4. SIMVASTATIN [Concomitant]
     Dates: start: 20090813
  5. CORSODYL [Concomitant]
     Dates: start: 20090807
  6. DIFFLAM [Concomitant]
     Dates: start: 20090808
  7. NYSTATIN [Concomitant]
     Dates: start: 20090812

REACTIONS (2)
  - ARTERIOSPASM CORONARY [None]
  - RETINOIC ACID SYNDROME [None]
